FAERS Safety Report 6717469-X (Version None)
Quarter: 2010Q2

REPORT INFORMATION
  Report Type: 
  Country: None (occurrence: None)
  Receive Date: 20100510
  Receipt Date: 20100426
  Transmission Date: 20101027
  Serious: Yes (Other)
  Sender: FDA-Public Use
  Company Number: US-ROCHE-701289

PATIENT
  Age: 85 Year
  Sex: Female
  Weight: 52.2 kg

DRUGS (1)
  1. BONIVA [Suspect]
     Indication: OSTEOPENIA
     Route: 048
     Dates: start: 20050101

REACTIONS (2)
  - FALL [None]
  - FOOT FRACTURE [None]
